FAERS Safety Report 4621228-1 (Version None)
Quarter: 2005Q1

REPORT INFORMATION
  Report Type: 
  Country: None (occurrence: None)
  Receive Date: 20050322
  Receipt Date: 20050322
  Transmission Date: 20050727
  Serious: Yes (Hospitalization)
  Sender: FDA-Public Use
  Company Number: None

PATIENT
  Age: 51 Year
  Sex: Male

DRUGS (2)
  1. ZOLMITRIPTAN 5 MG [Suspect]
     Indication: MIGRAINE
     Dosage: 5 MG PO QD PRN
     Route: 048
  2. SERTRALINE HCL [Suspect]
     Indication: DEPRESSION
     Dosage: 50 MG PO QD
     Route: 048

REACTIONS (1)
  - SEROTONIN SYNDROME [None]
